FAERS Safety Report 15242539 (Version 4)
Quarter: 2023Q2

REPORT INFORMATION
  Report Type: Spontaneous
  Country: US (occurrence: US)
  Receive Date: 20180806
  Receipt Date: 20230617
  Transmission Date: 20230722
  Serious: Yes (Life-Threatening, Hospitalization, Other)
  Sender: FDA-Public Use
  Company Number: US-AUROBINDO-AUR-APL-2018-038128

PATIENT
  Age: 24 Year
  Sex: Female

DRUGS (17)
  1. METOPROLOL [Suspect]
     Active Substance: METOPROLOL
     Indication: Product used for unknown indication
     Dosage: UNK
     Route: 048
  2. CYCLOBENZAPRINE [Suspect]
     Active Substance: CYCLOBENZAPRINE
     Indication: Product used for unknown indication
     Dosage: UNK
     Route: 065
  3. FLUOXETINE [Suspect]
     Active Substance: FLUOXETINE HYDROCHLORIDE
     Indication: Suicide attempt
     Dosage: UNK
     Route: 048
  4. LORAZEPAM [Suspect]
     Active Substance: LORAZEPAM
     Indication: Product used for unknown indication
     Dosage: UNK
     Route: 048
  5. LORAZEPAM [Suspect]
     Active Substance: LORAZEPAM
     Indication: Suicide attempt
  6. PENICILLIN V [Suspect]
     Active Substance: PENICILLIN V
     Indication: Product used for unknown indication
  7. SIMVASTATIN [Suspect]
     Active Substance: SIMVASTATIN
     Indication: Product used for unknown indication
     Route: 065
  8. TRAMADOL [Suspect]
     Active Substance: TRAMADOL
     Indication: Suicide attempt
     Dosage: UNK
     Route: 048
  9. VENLAFAXINE [Suspect]
     Active Substance: VENLAFAXINE HYDROCHLORIDE
     Indication: Suicide attempt
     Dosage: ()
     Route: 048
  10. ZOLPIDEM [Suspect]
     Active Substance: ZOLPIDEM TARTRATE
     Indication: Product used for unknown indication
     Dosage: ()
     Route: 048
  11. ZOLPIDEM [Suspect]
     Active Substance: ZOLPIDEM TARTRATE
     Indication: Suicide attempt
  12. CLONAZEPAM [Suspect]
     Active Substance: CLONAZEPAM
     Indication: Product used for unknown indication
     Dosage: UNK
     Route: 048
  13. CLONAZEPAM [Suspect]
     Active Substance: CLONAZEPAM
     Indication: Suicide attempt
  14. ACETAMINOPHEN\OXYCODONE HYDROCHLORIDE [Suspect]
     Active Substance: ACETAMINOPHEN\OXYCODONE HYDROCHLORIDE
     Indication: Product used for unknown indication
     Dosage: UNK
     Route: 065
  15. TEMAZEPAM [Suspect]
     Active Substance: TEMAZEPAM
     Indication: Suicide attempt
     Dosage: UNK
     Route: 048
  16. GLUCAGON [Suspect]
     Active Substance: GLUCAGON
     Indication: Toxicity to various agents
     Dosage: 3 MILLIGRAM, EVERY HOUR
     Route: 065
  17. PENICILLIN V POTASSIUM [Suspect]
     Active Substance: PENICILLIN V POTASSIUM
     Indication: Product used for unknown indication
     Dosage: UNK
     Route: 048

REACTIONS (22)
  - Unresponsive to stimuli [Recovering/Resolving]
  - Cardiac failure acute [Recovering/Resolving]
  - Decorticate posture [Recovered/Resolved]
  - Coma scale abnormal [Recovering/Resolving]
  - Sinus bradycardia [Recovering/Resolving]
  - Overdose [Recovering/Resolving]
  - Blood pressure decreased [Recovering/Resolving]
  - Loss of consciousness [Recovered/Resolved]
  - Acute respiratory distress syndrome [Recovered/Resolved]
  - Hypotension [Recovered/Resolved]
  - Bradycardia [Recovered/Resolved]
  - Ventricular hypokinesia [Recovered/Resolved]
  - Intentional overdose [Recovered/Resolved]
  - Myocardial depression [Recovered/Resolved]
  - Encephalopathy [Recovered/Resolved]
  - Toxicity to various agents [Recovered/Resolved]
  - Hypothermia [Recovered/Resolved]
  - Suicide attempt [Recovered/Resolved]
  - Respiratory depression [Recovered/Resolved]
  - Hypothermia [Recovered/Resolved]
  - Drug ineffective [Unknown]
  - Coma [Recovered/Resolved]
